FAERS Safety Report 24366825 (Version 1)
Quarter: 2024Q3

REPORT INFORMATION
  Report Type: Other
  Country: SA (occurrence: SA)
  Receive Date: 20240926
  Receipt Date: 20240926
  Transmission Date: 20241017
  Serious: Yes (Life-Threatening, Hospitalization)
  Sender: B BRAUN
  Company Number: SA-B.Braun Medical Inc.-2162045

PATIENT
  Sex: Female

DRUGS (2)
  1. HEPARIN SODIUM IN DEXTROSE [Suspect]
     Active Substance: HEPARIN SODIUM
     Indication: Thrombosis
  2. WARFARIN [Suspect]
     Active Substance: WARFARIN

REACTIONS (1)
  - Drug ineffective [Unknown]
